FAERS Safety Report 14289360 (Version 1)
Quarter: 2017Q4

REPORT INFORMATION
  Report Type: Spontaneous
  Country: US (occurrence: US)
  Receive Date: 20171215
  Receipt Date: 20171215
  Transmission Date: 20180321
  Serious: No
  Sender: FDA-Public Use
  Company Number: US-PFIZER INC-2017536940

PATIENT
  Age: 58 Year
  Sex: Female
  Weight: 79.82 kg

DRUGS (1)
  1. XELJANZ [Suspect]
     Active Substance: TOFACITINIB CITRATE
     Dosage: UNK

REACTIONS (3)
  - Hepatic enzyme increased [Unknown]
  - Abdominal pain upper [Unknown]
  - Abdominal pain [Unknown]
